FAERS Safety Report 6932190-0 (Version None)
Quarter: 2010Q3

REPORT INFORMATION
  Report Type: 
  Country: None (occurrence: None)
  Receive Date: 20100813
  Receipt Date: 20100615
  Transmission Date: 20110219
  Serious: No
  Sender: FDA-Public Use
  Company Number: 1000014497

PATIENT
  Age: 43 Year
  Sex: Female

DRUGS (4)
  1. SAVELLA [Suspect]
     Dosage: ORAL
     Route: 048
  2. VITAMIN B-12 [Concomitant]
  3. REQUIP [Concomitant]
  4. ALLERGY MECICATION (NOS) [Concomitant]

REACTIONS (1)
  - WEIGHT INCREASED [None]
